FAERS Safety Report 8063501-3 (Version None)
Quarter: 2012Q1

REPORT INFORMATION
  Report Type: 
  Country: None (occurrence: None)
  Receive Date: 20120123
  Receipt Date: 20120119
  Transmission Date: 20120608
  Serious: Yes (Death, Other)
  Sender: FDA-Public Use
  Company Number: PHHY2011IN93654

PATIENT
  Sex: Male

DRUGS (2)
  1. GLEEVEC [Suspect]
     Indication: CHRONIC MYELOID LEUKAEMIA
     Dosage: 600 MG, UNK
  2. GLEEVEC [Suspect]
     Dosage: 800 MG, UNK

REACTIONS (4)
  - CHRONIC MYELOID LEUKAEMIA [None]
  - DEATH [None]
  - NEOPLASM MALIGNANT [None]
  - THERAPEUTIC RESPONSE DECREASED [None]
